FAERS Safety Report 4954282-8 (Version None)
Quarter: 2006Q1

REPORT INFORMATION
  Report Type: 
  Country: None (occurrence: None)
  Receive Date: 20060322
  Receipt Date: 20060222
  Transmission Date: 20060701
  Serious: Yes (Life-Threatening, Hospitalization)
  Sender: FDA-Public Use
  Company Number: 2006022230

PATIENT
  Age: 48 Year
  Sex: Female

DRUGS (1)
  1. ZYRTEC [Suspect]
     Indication: PHOTOSENSITIVITY ALLERGIC REACTION
     Dosage: 10 MG (1 D), ORAL
     Route: 048
     Dates: start: 20050510, end: 20050920

REACTIONS (25)
  - AUTOIMMUNE HEPATITIS [None]
  - BLOOD ALBUMIN INCREASED [None]
  - BLOOD IMMUNOGLOBULIN G INCREASED [None]
  - CHOLESTASIS [None]
  - CUSHINGOID [None]
  - DRUG TOXICITY [None]
  - FLUID RETENTION [None]
  - GALLBLADDER DISORDER [None]
  - GENERAL PHYSICAL HEALTH DETERIORATION [None]
  - HEPATIC CIRRHOSIS [None]
  - HEPATIC FAILURE [None]
  - HEPATIC NECROSIS [None]
  - HEPATITIS [None]
  - HEPATITIS ACUTE [None]
  - HEPATOCELLULAR DAMAGE [None]
  - HEPATOMEGALY [None]
  - IMMUNOGLOBULINS INCREASED [None]
  - INFUSION RELATED REACTION [None]
  - JAUNDICE [None]
  - LIPASE INCREASED [None]
  - LIVER DISORDER [None]
  - MALAISE [None]
  - OEDEMA [None]
  - SPIDER NAEVUS [None]
  - TENDERNESS [None]
